FAERS Safety Report 9292425 (Version 1)
Quarter: 2013Q2

REPORT INFORMATION
  Report Type: Spontaneous
  Country: US (occurrence: US)
  Receive Date: 20130516
  Receipt Date: 20130516
  Transmission Date: 20140414
  Serious: Yes (Other)
  Sender: FDA-Public Use
  Company Number: US-BAYER-2013-059012

PATIENT
  Age: 55 Year
  Sex: Female
  Weight: 45.35 kg

DRUGS (6)
  1. RID 1-2-3 SYSTEM [Suspect]
     Dosage: 1 DOSE, ONCE
     Route: 061
     Dates: start: 20130507, end: 20130507
  2. PROVENTIL [Concomitant]
  3. SINGULAIR [Concomitant]
  4. ALLEGRA [Concomitant]
  5. ACIPHEX [Concomitant]
  6. VITAMIN D [Concomitant]

REACTIONS (1)
  - Asthma [Not Recovered/Not Resolved]
